FAERS Safety Report 17147842 (Version 1)
Quarter: 2019Q4

REPORT INFORMATION
  Report Type: Spontaneous
  Country: ES (occurrence: ES)
  Receive Date: 20191212
  Receipt Date: 20191212
  Transmission Date: 20200122
  Serious: Yes (Other)
  Sender: FDA-Public Use
  Company Number: NVSC2019ES001979

PATIENT
  Age: 46 Year
  Sex: Female

DRUGS (1)
  1. CANAKINUMAB. [Suspect]
     Active Substance: CANAKINUMAB
     Indication: AUTOINFLAMMATORY DISEASE
     Dosage: 150 MG, EVERY 8 WEEKS
     Route: 058
     Dates: start: 20190426, end: 20190814

REACTIONS (2)
  - Complement factor decreased [Unknown]
  - Angioedema [Unknown]
